FAERS Safety Report 8902636 (Version 2)
Quarter: 2012Q4

REPORT INFORMATION
  Report Type: Report from Study
  Country: US (occurrence: US)
  Receive Date: 20121112
  Receipt Date: 20121116
  Transmission Date: 20130627
  Serious: Yes (Hospitalization)
  Sender: FDA-Public Use
  Company Number: US-ROCHE-1152667

PATIENT
  Age: 72 Year
  Sex: Male
  Weight: 116.22 kg

DRUGS (6)
  1. VISMODEGIB [Suspect]
     Indication: BASAL CELL CARCINOMA
     Route: 048
     Dates: start: 20120629
  2. METOPROLOL [Concomitant]
     Route: 065
     Dates: start: 1993
  3. AMLODIPINE BESILATE [Concomitant]
     Route: 065
     Dates: start: 2011
  4. SIMVASTATIN [Concomitant]
     Route: 065
     Dates: start: 2011
  5. POTASSIUM [Concomitant]
     Route: 065
     Dates: start: 2012
  6. VITAMIN B12 [Concomitant]
     Route: 065
     Dates: start: 2012

REACTIONS (1)
  - Cellulitis [Unknown]
